FAERS Safety Report 7324227-4 (Version None)
Quarter: 2011Q1

REPORT INFORMATION
  Report Type: 
  Country: None (occurrence: None)
  Receive Date: 20110301
  Receipt Date: 20110218
  Transmission Date: 20110831
  Serious: Yes (Hospitalization, Other)
  Sender: FDA-Public Use
  Company Number: US-AMGEN-USASP2011010344

PATIENT
  Age: 69 Year
  Sex: Female

DRUGS (5)
  1. MULTI-VITAMINS [Concomitant]
     Dosage: UNK
  2. ENBREL [Suspect]
     Indication: PRODUCT USED FOR UNKNOWN INDICATION
     Dosage: UNK
     Dates: start: 20070901, end: 20110101
  3. FISH OIL [Concomitant]
     Dosage: UNK
  4. HYDROCHLOROTHIAZIDE [Concomitant]
     Dosage: UNK
  5. GALENIC /CALCIUM/VITAMIN D/ [Concomitant]
     Dosage: UNK

REACTIONS (1)
  - UTERINE CANCER [None]
